FAERS Safety Report 15144806 (Version 2)
Quarter: 2018Q3

REPORT INFORMATION
  Report Type: Spontaneous
  Country: CN (occurrence: CN)
  Receive Date: 20180713
  Receipt Date: 20180713
  Transmission Date: 20181010
  Serious: Yes (Death, Other)
  Sender: FDA-Public Use
  Company Number: PHHY2018CN039991

PATIENT
  Age: 55 Year
  Sex: Male

DRUGS (7)
  1. PREDNISONE. [Suspect]
     Active Substance: PREDNISONE
     Indication: RENAL TRANSPLANT
     Dosage: UNK
     Route: 065
  2. MYCOPHENOLIC ACID. [Suspect]
     Active Substance: MYCOPHENOLIC ACID
     Indication: IMMUNOSUPPRESSANT DRUG THERAPY
  3. TACROLIMUS. [Suspect]
     Active Substance: TACROLIMUS
     Indication: RENAL TRANSPLANT
     Dosage: UNK
     Route: 065
  4. TACROLIMUS. [Suspect]
     Active Substance: TACROLIMUS
     Indication: IMMUNOSUPPRESSANT DRUG THERAPY
  5. PREDNISONE. [Suspect]
     Active Substance: PREDNISONE
     Indication: IMMUNOSUPPRESSANT DRUG THERAPY
  6. CYCLOSPORIN A [Concomitant]
     Active Substance: CYCLOSPORINE
     Indication: PRODUCT USED FOR UNKNOWN INDICATION
     Dosage: UNK
     Route: 065
     Dates: start: 201507
  7. MYCOPHENOLIC ACID. [Suspect]
     Active Substance: MYCOPHENOLIC ACID
     Indication: RENAL TRANSPLANT
     Dosage: UNK
     Route: 065

REACTIONS (25)
  - Myalgia [Fatal]
  - Paraesthesia [Fatal]
  - Mydriasis [Unknown]
  - Paralysis [Fatal]
  - Coma [Fatal]
  - Renal failure [Unknown]
  - Speech disorder [Fatal]
  - Deafness [Unknown]
  - Muscular weakness [Fatal]
  - Dysphagia [Fatal]
  - Crying [Fatal]
  - Insomnia [Fatal]
  - Demyelination [Unknown]
  - Fatigue [Fatal]
  - Mental disorder [Fatal]
  - Screaming [Fatal]
  - Salivary hypersecretion [Fatal]
  - Atrioventricular block complete [Unknown]
  - Rabies [Fatal]
  - Unresponsive to stimuli [Unknown]
  - Pyrexia [Fatal]
  - Haemodynamic instability [Unknown]
  - Complications of transplant surgery [Unknown]
  - Abdominal distension [Fatal]
  - Hypertension [Unknown]

NARRATIVE: CASE EVENT DATE: 201507
